FAERS Safety Report 17668164 (Version 1)
Quarter: 2020Q2

REPORT INFORMATION
  Report Type: Spontaneous
  Country: US (occurrence: US)
  Receive Date: 20200415
  Receipt Date: 20200415
  Transmission Date: 20200713
  Serious: Yes (Other)
  Sender: FDA-Public Use
  Company Number: US-ROCHE-2581523

PATIENT
  Age: 29 Year
  Sex: Female
  Weight: 59.02 kg

DRUGS (2)
  1. XOLAIR [Suspect]
     Active Substance: OMALIZUMAB
     Indication: CHRONIC SPONTANEOUS URTICARIA
     Dosage: YES
     Route: 058
     Dates: start: 2018
  2. XOLAIR [Suspect]
     Active Substance: OMALIZUMAB
     Indication: ASTHMA
     Dosage: NO
     Route: 058
     Dates: end: 2018

REACTIONS (10)
  - Skin irritation [Recovered/Resolved]
  - Frustration tolerance decreased [Not Recovered/Not Resolved]
  - Fear [Not Recovered/Not Resolved]
  - Anaphylactic reaction [Recovered/Resolved]
  - Feeling of despair [Not Recovered/Not Resolved]
  - Urticaria [Recovered/Resolved]
  - Stress [Not Recovered/Not Resolved]
  - Asthma [Recovered/Resolved]
  - Product dose omission [Unknown]
  - Confusional state [Not Recovered/Not Resolved]

NARRATIVE: CASE EVENT DATE: 202001
